FAERS Safety Report 5914252-X (Version None)
Quarter: 2008Q4

REPORT INFORMATION
  Report Type: 
  Country: None (occurrence: None)
  Receive Date: 20081009
  Receipt Date: 20080926
  Transmission Date: 20090506
  Serious: Yes (Hospitalization, Other)
  Sender: FDA-Public Use
  Company Number: US-ELI_LILLY_AND_COMPANY-US200809006718

PATIENT
  Sex: Female

DRUGS (2)
  1. FORTEO [Suspect]
     Dates: start: 20080101, end: 20080101
  2. FORTEO [Suspect]
     Dates: start: 20080101

REACTIONS (3)
  - FALL [None]
  - FEMUR FRACTURE [None]
  - INJECTION SITE ERYTHEMA [None]
